FAERS Safety Report 6526012-X (Version None)
Quarter: 2010Q1

REPORT INFORMATION
  Report Type: 
  Country: None (occurrence: None)
  Receive Date: 20100104
  Receipt Date: 20091222
  Transmission Date: 20100710
  Serious: Yes (Life-Threatening, Hospitalization)
  Sender: FDA-Public Use
  Company Number: GB-PFIZER INC-2009218680

PATIENT
  Age: 78 Year
  Sex: Male

DRUGS (6)
  1. DALTEPARIN SODIUM [Suspect]
     Indication: LUNG NEOPLASM MALIGNANT
     Dosage: 5000 IU, 1X/DAY
     Dates: start: 20090310
  2. CARBOPLATIN [Suspect]
     Dosage: UNK
  3. GEMCITABINE [Suspect]
  4. ASPIRIN [Suspect]
     Dosage: UNK
     Route: 048
     Dates: start: 20001205, end: 20090525
  5. SOTALOL [Concomitant]
     Dosage: 80 MG, UNK
     Route: 048
     Dates: start: 20000226
  6. SIMVASTATIN [Concomitant]
     Dosage: 20 MG, UNK
     Route: 048

REACTIONS (4)
  - EPISTAXIS [None]
  - NEUTROPHIL COUNT DECREASED [None]
  - PLATELET COUNT DECREASED [None]
  - WHITE BLOOD CELL COUNT DECREASED [None]
